FAERS Safety Report 20015454 (Version 1)
Quarter: 2021Q4

REPORT INFORMATION
  Report Type: Spontaneous
  Country: US (occurrence: None)
  Receive Date: 20211030
  Receipt Date: 20211030
  Transmission Date: 20220303
  Serious: No
  Sender: FDA-Public Use
  Company Number: None

PATIENT
  Age: 9 Year
  Sex: Female

DRUGS (1)
  1. LUPRON DEPOT-PED [Suspect]
     Active Substance: LEUPROLIDE ACETATE
     Indication: Precocious puberty
     Dosage: OTHER QUANTITY : 1 INJECTION(S);?OTHER FREQUENCY : 3 MONTHS;?OTHER ROUTE : INJECTED INTO THIGH;?
     Route: 058
     Dates: start: 20210601, end: 20210915

REACTIONS (5)
  - Peripheral swelling [None]
  - Pain in extremity [None]
  - Contusion [None]
  - Pyrexia [None]
  - Gait disturbance [None]

NARRATIVE: CASE EVENT DATE: 20210917
